FAERS Safety Report 12472158 (Version 1)
Quarter: 2016Q2

REPORT INFORMATION
  Report Type: Spontaneous
  Country: US (occurrence: US)
  Receive Date: 20160616
  Receipt Date: 20160616
  Transmission Date: 20160815
  Serious: No
  Sender: FDA-Public Use
  Company Number: US-PFIZER INC-2016301835

PATIENT
  Age: 64 Year
  Sex: Female

DRUGS (6)
  1. VITAMIN D3 [Concomitant]
     Active Substance: CHOLECALCIFEROL
     Dosage: UNK
  2. POTASSIUM BITARTRATE. [Concomitant]
     Active Substance: POTASSIUM BITARTRATE
     Dosage: UNK
  3. VITAMIN E [Concomitant]
     Active Substance: .ALPHA.-TOCOPHEROL
     Dosage: UNK
  4. ZINC [Concomitant]
     Active Substance: ZINC\ZINC CHLORIDE
     Dosage: UNK
  5. XELJANZ [Suspect]
     Active Substance: TOFACITINIB CITRATE
     Indication: RHEUMATOID ARTHRITIS
     Dosage: 5 MG, 2X/DAY (TWICE DAILY)
     Route: 048
     Dates: end: 20160519
  6. FISH OIL [Concomitant]
     Active Substance: FISH OIL
     Dosage: UNK

REACTIONS (6)
  - Upper respiratory tract infection [Recovering/Resolving]
  - Sputum discoloured [Recovering/Resolving]
  - Sinusitis [Recovering/Resolving]
  - Cough [Recovering/Resolving]
  - Chest pain [Recovering/Resolving]
  - Dermatitis contact [Unknown]

NARRATIVE: CASE EVENT DATE: 20160519
